FAERS Safety Report 9034641 (Version 1)
Quarter: 2013Q1

REPORT INFORMATION
  Report Type: Spontaneous
  Country: US (occurrence: None)
  Receive Date: 20130116
  Receipt Date: 20130116
  Transmission Date: 20140127
  Serious: Yes (Hospitalization)
  Sender: FDA-Public Use
  Company Number: None

PATIENT
  Age: 34 Year
  Sex: Female

DRUGS (4)
  1. LEVAQUIN [Suspect]
     Indication: URINARY TRACT INFECTION
     Dates: start: 20110724, end: 20110802
  2. ROCHEPHIN [Concomitant]
  3. XANEX [Concomitant]
  4. PREDNISONE [Concomitant]

REACTIONS (5)
  - Abdominal pain upper [None]
  - Alanine aminotransferase increased [None]
  - Aspartate aminotransferase increased [None]
  - Blood bilirubin increased [None]
  - Blood alkaline phosphatase increased [None]
